FAERS Safety Report 20140585 (Version 1)
Quarter: 2021Q4

REPORT INFORMATION
  Report Type: Report from Study
  Country: CO (occurrence: CO)
  Receive Date: 20211202
  Receipt Date: 20211202
  Transmission Date: 20220304
  Serious: Yes (Hospitalization)
  Sender: FDA-Public Use
  Company Number: CO-NOVARTISPH-NVSC2019CO060560

PATIENT
  Sex: Female
  Weight: 53 kg

DRUGS (10)
  1. JADENU [Suspect]
     Active Substance: DEFERASIROX
     Indication: Sickle cell disease
     Dosage: 720 MG, QD
     Route: 048
  2. JADENU [Suspect]
     Active Substance: DEFERASIROX
     Dosage: 360 MG, Q12H
     Route: 048
     Dates: start: 2014
  3. PREGABALIN [Suspect]
     Active Substance: PREGABALIN
     Indication: Pain
     Dosage: 150 UG, Q8H
     Route: 065
     Dates: start: 2014
  4. FOLIC ACID [Concomitant]
     Active Substance: FOLIC ACID
     Indication: Product used for unknown indication
     Dosage: 50 MG, QD
     Route: 048
  5. OMEPRAZOLE [Concomitant]
     Active Substance: OMEPRAZOLE
     Indication: Prophylaxis
     Dosage: 200 MG (IN FASTING)
     Route: 065
  6. ERYTHROPOIETIN [Concomitant]
     Active Substance: ERYTHROPOIETIN
     Indication: Transfusion
     Dosage: 30000 IU, QW
     Route: 065
     Dates: start: 2006
  7. HYDROXYUREA [Concomitant]
     Active Substance: HYDROXYUREA
     Indication: Sickle cell disease
     Dosage: 500 MG
     Route: 065
     Dates: start: 2006
  8. AMITRIPTYLINE [Concomitant]
     Active Substance: AMITRIPTYLINE
     Indication: Pain
     Dosage: 25 MG, QD
     Route: 065
     Dates: start: 202109
  9. ALPRAZOLAM [Concomitant]
     Active Substance: ALPRAZOLAM
     Indication: Pain
     Dosage: 0.5 MG, QD
     Route: 048
  10. METHADONE [Concomitant]
     Active Substance: METHADONE HYDROCHLORIDE
     Indication: Pain
     Dosage: 10 MG, Q8H
     Route: 048
     Dates: start: 2013

REACTIONS (13)
  - Pain in extremity [Not Recovered/Not Resolved]
  - Haemoglobin abnormal [Unknown]
  - Blood pressure increased [Unknown]
  - Haemolysis [Unknown]
  - Heart rate decreased [Unknown]
  - Superficial vein thrombosis [Unknown]
  - Arthralgia [Not Recovered/Not Resolved]
  - Asthenia [Unknown]
  - Pain [Unknown]
  - Feeling abnormal [Unknown]
  - Back pain [Not Recovered/Not Resolved]
  - Spinal pain [Unknown]
  - Off label use [Unknown]
